FAERS Safety Report 9579974 (Version 1)
Quarter: 2013Q3

REPORT INFORMATION
  Report Type: Spontaneous
  Country: US (occurrence: None)
  Receive Date: 20130930
  Receipt Date: 20130930
  Transmission Date: 20140515
  Serious: Yes (Disabling, Other)
  Sender: FDA-Public Use
  Company Number: None

PATIENT
  Age: 54 Year
  Sex: Female
  Weight: 65.77 kg

DRUGS (1)
  1. BOTOX [Suspect]

REACTIONS (7)
  - Headache [None]
  - Eyelid ptosis [None]
  - Musculoskeletal stiffness [None]
  - Eye pain [None]
  - Somnolence [None]
  - Eye swelling [None]
  - Pain [None]
